FAERS Safety Report 5132876-7 (Version None)
Quarter: 2006Q4

REPORT INFORMATION
  Report Type: 
  Country: None (occurrence: None)
  Receive Date: 20061023
  Receipt Date: 20061012
  Transmission Date: 20070319
  Serious: Yes (Hospitalization)
  Sender: FDA-Public Use
  Company Number: BE-JNJFOC-20061001106

PATIENT
  Sex: Male
  Weight: 72 kg

DRUGS (2)
  1. SPORANOX [Suspect]
     Indication: ONYCHOMYCOSIS
     Route: 048
     Dates: start: 20060720, end: 20060727
  2. SPORANOX [Suspect]
     Indication: TINEA PEDIS
     Route: 048
     Dates: start: 20060720, end: 20060727

REACTIONS (1)
  - CARDIAC FAILURE CONGESTIVE [None]
